FAERS Safety Report 7650982-X (Version None)
Quarter: 2011Q3

REPORT INFORMATION
  Report Type: 
  Country: None (occurrence: None)
  Receive Date: 20110802
  Receipt Date: 20110720
  Transmission Date: 20111222
  Serious: Yes (Other)
  Sender: FDA-Public Use
  Company Number: US-ASTRAZENECA-2009UW11821

PATIENT
  Age: 49 Year
  Sex: Female
  Weight: 108 kg

DRUGS (9)
  1. TRAZODONE HYDROCHLORIDE [Concomitant]
     Dosage: 50-100 MG
     Dates: start: 20050802, end: 20070709
  2. ABILIFY [Concomitant]
     Dates: start: 20020101, end: 20030101
  3. CORDARONE [Concomitant]
  4. SEROQUEL [Suspect]
     Indication: BIPOLAR DISORDER
     Dosage: 100-200 MG
     Route: 048
     Dates: start: 20010101, end: 20090801
  5. ZYPREXA [Concomitant]
  6. SEROQUEL [Suspect]
     Indication: DEPRESSION
     Dosage: 100-200 MG
     Route: 048
     Dates: start: 20010101, end: 20090801
  7. SYMBYAX [Concomitant]
  8. FLUOXETINE [Concomitant]
     Dates: start: 20050802, end: 20070709
  9. CELEXA [Concomitant]

REACTIONS (16)
  - CARDIAC DISORDER [None]
  - TARDIVE DYSKINESIA [None]
  - CORONARY ARTERY DISEASE [None]
  - BLOOD TRIGLYCERIDES INCREASED [None]
  - MYOCARDIAL INFARCTION [None]
  - CHRONIC OBSTRUCTIVE PULMONARY DISEASE [None]
  - PULMONARY EMBOLISM [None]
  - HYPERLIPIDAEMIA [None]
  - DIABETIC KETOACIDOSIS [None]
  - PAIN [None]
  - CARDIAC FAILURE CONGESTIVE [None]
  - BLOOD CHOLESTEROL INCREASED [None]
  - ANGIOPATHY [None]
  - DIABETES MELLITUS [None]
  - DEEP VEIN THROMBOSIS [None]
  - TYPE 2 DIABETES MELLITUS [None]
